FAERS Safety Report 4916810-8 (Version None)
Quarter: 2006Q1

REPORT INFORMATION
  Report Type: 
  Country: None (occurrence: None)
  Receive Date: 20060220
  Receipt Date: 20060210
  Transmission Date: 20060701
  Serious: Yes (Congenital Anomaly)
  Sender: FDA-Public Use
  Company Number: JP-ROCHE-436209

PATIENT
  Sex: Female
  Weight: 3.1 kg

DRUGS (7)
  1. CLONAZEPAM [Suspect]
     Indication: SCHIZOPHRENIA
     Route: 064
     Dates: start: 20050315, end: 20050825
  2. LUVOX [Suspect]
     Indication: SCHIZOPHRENIA
     Route: 064
     Dates: start: 20050315, end: 20050825
  3. ARTANE [Suspect]
     Indication: SCHIZOPHRENIA
     Route: 064
     Dates: start: 20050315, end: 20050825
  4. SEROQUEL [Suspect]
     Indication: SCHIZOPHRENIA
     Route: 064
     Dates: start: 20050315, end: 20050825
  5. HIBERNA [Suspect]
     Indication: SCHIZOPHRENIA
     Route: 064
     Dates: start: 20050315, end: 20050825
  6. SILECE [Suspect]
     Indication: SCHIZOPHRENIA
     Route: 064
     Dates: start: 20050315, end: 20050825
  7. RISPERDAL [Suspect]
     Indication: SCHIZOPHRENIA
     Route: 064
     Dates: start: 20030815, end: 20050825

REACTIONS (10)
  - AGITATION NEONATAL [None]
  - DRUG EXPOSURE DURING PREGNANCY [None]
  - DRUG WITHDRAWAL SYNDROME NEONATAL [None]
  - EYE MOVEMENT DISORDER [None]
  - FEVER NEONATAL [None]
  - HYPOTONIA NEONATAL [None]
  - IRRITABILITY [None]
  - PREGNANCY [None]
  - SOMNOLENCE NEONATAL [None]
  - TREMOR NEONATAL [None]
